FAERS Safety Report 5142213-X (Version None)
Quarter: 2006Q4

REPORT INFORMATION
  Report Type: 
  Country: None (occurrence: None)
  Receive Date: 20061102
  Receipt Date: 20061025
  Transmission Date: 20070319
  Serious: Yes (Death, Other)
  Sender: FDA-Public Use
  Company Number: ES-AVENTIS-200621122GDDC

PATIENT
  Age: 41 Year
  Sex: Female
  Weight: 67 kg

DRUGS (3)
  1. TAXOTERE [Suspect]
     Indication: BREAST CANCER FEMALE
     Route: 042
     Dates: start: 20050830, end: 20050830
  2. HERCEPTIN [Suspect]
     Indication: BREAST CANCER FEMALE
     Route: 042
     Dates: start: 20050429, end: 20050830
  3. DOXORUBICIN HCL [Suspect]
     Indication: BREAST CANCER FEMALE
     Dates: start: 20050415, end: 20050722

REACTIONS (4)
  - CARDIAC ARREST [None]
  - CARDIAC FAILURE [None]
  - CARDIOMYOPATHY [None]
  - RESPIRATORY DEPRESSION [None]
